FAERS Safety Report 8003194-4 (Version None)
Quarter: 2011Q4

REPORT INFORMATION
  Report Type: 
  Country: None (occurrence: None)
  Receive Date: 20111222
  Receipt Date: 20111215
  Transmission Date: 20120403
  Serious: Yes (Congenital Anomaly)
  Sender: FDA-Public Use
  Company Number: PHHY2011CN108977

PATIENT
  Sex: Female
  Weight: 3 kg

DRUGS (2)
  1. SEBIVO [Suspect]
     Indication: HEPATITIS B
     Dosage: 1 DF, DAILY MATERNAL DOSE
     Route: 064
  2. LAMIVUDINE [Concomitant]

REACTIONS (3)
  - GASTRIC VOLVULUS [None]
  - FOETAL EXPOSURE DURING PREGNANCY [None]
  - HEART DISEASE CONGENITAL [None]
